FAERS Safety Report 5604225-9 (Version None)
Quarter: 2008Q1

REPORT INFORMATION
  Report Type: 
  Country: None (occurrence: None)
  Receive Date: 20080123
  Receipt Date: 20080114
  Transmission Date: 20080703
  Serious: Yes (Death)
  Sender: FDA-Public Use
  Company Number: B0503111A

PATIENT
  Age: 53 Year
  Sex: Female

DRUGS (9)
  1. MORPHINE [Suspect]
     Dosage: ORAL
     Route: 048
  2. ASPIRIN+BUTALBITAL+CAFFN. (FORMULATION UNKNOWN) (ASPIRIN+BUTALBITAL+CA [Suspect]
     Dosage: ORAL
     Route: 048
  3. HYDROCHLOROTHIAZIDE [Suspect]
     Dosage: ORAL
     Route: 048
  4. VERAPAMIL [Suspect]
     Dosage: ORAL
     Route: 048
  5. GABAPENTIN [Suspect]
     Dosage: ORAL
     Route: 048
  6. COMPAZINE [Suspect]
     Dosage: ORAL
     Route: 048
  7. DIAZEPAM [Suspect]
     Dosage: ORAL
     Route: 048
  8. BACLOFEN [Suspect]
     Dosage: ORAL
     Route: 048
  9. METHADONE HCL [Suspect]

REACTIONS (2)
  - COMPLETED SUICIDE [None]
  - POISONING [None]
